FAERS Safety Report 5604274-0 (Version None)
Quarter: 2008Q1

REPORT INFORMATION
  Report Type: 
  Country: None (occurrence: None)
  Receive Date: 20080128
  Receipt Date: 20080125
  Transmission Date: 20080703
  Serious: Yes (Other)
  Sender: FDA-Public Use
  Company Number: A0705283A

PATIENT
  Age: 38 Year
  Sex: Female
  Weight: 86.4 kg

DRUGS (2)
  1. ALLI [Suspect]
     Route: 048
     Dates: start: 20080101, end: 20080123
  2. LEXAPRO [Concomitant]

REACTIONS (4)
  - ANAL HAEMORRHAGE [None]
  - RECTAL DISCHARGE [None]
  - RECTAL HAEMORRHAGE [None]
  - RECTAL TENESMUS [None]
